FAERS Safety Report 4697053-2 (Version None)
Quarter: 2005Q2

REPORT INFORMATION
  Report Type: 
  Country: None (occurrence: None)
  Receive Date: 20050622
  Receipt Date: 20050523
  Transmission Date: 20051028
  Serious: Yes (Hospitalization)
  Sender: FDA-Public Use
  Company Number: US-AMGEN-US135292

PATIENT
  Sex: Male

DRUGS (11)
  1. ARANESP [Suspect]
     Indication: ANAEMIA OF MALIGNANT DISEASE
     Route: 058
     Dates: start: 20050519
  2. LIPITOR [Concomitant]
  3. TRICOR [Concomitant]
  4. NEURONTIN [Concomitant]
  5. LASIX [Concomitant]
  6. AMBIEN [Concomitant]
  7. ASPIRIN [Concomitant]
  8. ALLEGRA [Concomitant]
  9. VICODIN [Concomitant]
  10. VITAMIN E [Concomitant]
  11. ASCORBIC ACID [Concomitant]

REACTIONS (3)
  - ANAEMIA [None]
  - HAEMATURIA [None]
  - LEUKOCYTOSIS [None]
